FAERS Safety Report 12309547 (Version 2)
Quarter: 2016Q2

REPORT INFORMATION
  Report Type: Spontaneous
  Country: US (occurrence: US)
  Receive Date: 20160427
  Receipt Date: 20160509
  Transmission Date: 20160815
  Serious: No
  Sender: FDA-Public Use
  Company Number: US-PFIZER INC-2016231561

PATIENT
  Age: 62 Year
  Sex: Female
  Weight: 113 kg

DRUGS (4)
  1. CHONDROITIN [Concomitant]
     Active Substance: CHONDROITIN
     Indication: PAIN
     Dosage: 2 DF, DAILY
  2. XELJANZ [Suspect]
     Active Substance: TOFACITINIB CITRATE
     Indication: PSORIASIS
     Dosage: 10 MG, 2X/DAY
     Dates: end: 20160422
  3. CALCIUM + MAGNESIUM + ZINK [Concomitant]
     Indication: SUPPLEMENTATION THERAPY
     Dosage: 300 MG, DAILY (300MG CALCIUM INCLUDED IN ONE TABLET DAILY)
  4. VITAMIN D [Concomitant]
     Active Substance: CHOLECALCIFEROL
     Dosage: 1000 IU, DAILY

REACTIONS (10)
  - Erythema [Not Recovered/Not Resolved]
  - Product use issue [Unknown]
  - Dry skin [Unknown]
  - Burning sensation [Not Recovered/Not Resolved]
  - Flushing [Not Recovered/Not Resolved]
  - Drug dose omission [Unknown]
  - Rosacea [Not Recovered/Not Resolved]
  - Pruritus [Not Recovered/Not Resolved]
  - Drug ineffective [Unknown]
  - Herpes zoster [Unknown]

NARRATIVE: CASE EVENT DATE: 20160423
